FAERS Safety Report 17611648 (Version 3)
Quarter: 2020Q2

REPORT INFORMATION
  Report Type: Spontaneous
  Country: US (occurrence: US)
  Receive Date: 20200401
  Receipt Date: 20200416
  Transmission Date: 20200713
  Serious: Yes (Hospitalization, Other)
  Sender: FDA-Public Use
  Company Number: US-SHIRE-US202011767

PATIENT
  Weight: 65.3 kg

DRUGS (3)
  1. GATTEX [Suspect]
     Active Substance: TEDUGLUTIDE\WATER
     Dosage: 50 MICROGRAM/KILOGRAM, 1X/DAY:QD
     Route: 065
  2. GATTEX [Suspect]
     Active Substance: TEDUGLUTIDE\WATER
     Indication: SHORT-BOWEL SYNDROME
     Dosage: UNK UNK, QOD
     Route: 065
  3. GATTEX [Suspect]
     Active Substance: TEDUGLUTIDE\WATER
     Dosage: 0.16 MILLILITER, 1X/DAY:QD
     Route: 065

REACTIONS (5)
  - Haemorrhage [Unknown]
  - Blood creatinine increased [Unknown]
  - Stoma site haemorrhage [Unknown]
  - Fistula [Unknown]
  - Weight decreased [Unknown]
